FAERS Safety Report 8520233-2 (Version None)
Quarter: 2012Q3

REPORT INFORMATION
  Report Type: 
  Country: None (occurrence: None)
  Receive Date: 20120709
  Receipt Date: 20120622
  Transmission Date: 20120928
  Serious: Yes (Hospitalization)
  Sender: FDA-Public Use
  Company Number: 2012SGN00242

PATIENT
  Age: 78 Year
  Sex: Male
  Weight: 73 kg

DRUGS (1)
  1. BRENTUXIMAB VEDOTIN (BRENTUXIMAB VEDOTIN) NJECTION [Suspect]
     Indication: DIFFUSE LARGE B-CELL LYMPHOMA
     Dosage: 1.8 MG/KG, Q21D, INTRAVENOUS
     Route: 042
     Dates: start: 20120416, end: 20120507

REACTIONS (10)
  - BURNS FIRST DEGREE [None]
  - ASTHENIA [None]
  - ATELECTASIS [None]
  - LYMPHOMA [None]
  - PERFORMANCE STATUS DECREASED [None]
  - PULMONARY OEDEMA [None]
  - BACK PAIN [None]
  - NEOPLASM RECURRENCE [None]
  - LOBAR PNEUMONIA [None]
  - NEOPLASM PROGRESSION [None]
